FAERS Safety Report 12765187 (Version 1)
Quarter: 2016Q3

REPORT INFORMATION
  Report Type: Spontaneous
  Country: US (occurrence: US)
  Receive Date: 20160921
  Receipt Date: 20160921
  Transmission Date: 20161109
  Serious: No
  Sender: FDA-Public Use
  Company Number: US-GLENMARK PHARMACEUTICALS INC, USA.-2016GMK022269

PATIENT

DRUGS (2)
  1. CLOTRIMAZOLE. [Suspect]
     Active Substance: CLOTRIMAZOLE
     Indication: NASAL DISORDER
     Dosage: UNK, APPLY TWICE IN THE AM AND TWICE IN THE PM (AS NEEDED)
     Route: 045
     Dates: start: 201603
  2. ACYCLOVIR                          /00587301/ [Concomitant]
     Active Substance: ACYCLOVIR
     Indication: VIRAL INFECTION
     Dosage: UNK
     Route: 048

REACTIONS (3)
  - Drug ineffective for unapproved indication [Unknown]
  - No adverse event [Unknown]
  - Wrong technique in product usage process [Unknown]
